FAERS Safety Report 7711826-0 (Version None)
Quarter: 2011Q3

REPORT INFORMATION
  Report Type: 
  Country: None (occurrence: None)
  Receive Date: 20110826
  Receipt Date: 20110819
  Transmission Date: 20111222
  Serious: Yes (Death)
  Sender: FDA-Public Use
  Company Number: PL-ASTELLAS-2011EU005677

PATIENT
  Age: 12 Year
  Sex: Female

DRUGS (5)
  1. TACROLIMUS [Suspect]
     Indication: ACUTE GRAFT VERSUS HOST DISEASE IN SKIN
     Dosage: 6 MG, UNKNOWN/D
     Route: 065
  2. CYCLOSPORINE [Concomitant]
     Indication: ACUTE GRAFT VERSUS HOST DISEASE IN SKIN
     Dosage: UNK
     Route: 065
  3. TACROLIMUS [Suspect]
     Dosage: 3 MG, UNKNOWN/D
     Route: 065
  4. MYCOPHENOLATE MOFETIL [Concomitant]
     Indication: ACUTE GRAFT VERSUS HOST DISEASE IN SKIN
     Dosage: UNK
     Route: 065
  5. GLUCOCORTICOSTEROIDS [Concomitant]
     Indication: ACUTE GRAFT VERSUS HOST DISEASE IN SKIN
     Dosage: UNK
     Route: 065

REACTIONS (2)
  - OFF LABEL USE [None]
  - POSTERIOR REVERSIBLE ENCEPHALOPATHY SYNDROME [None]
